FAERS Safety Report 13136781 (Version 1)
Quarter: 2017Q1

REPORT INFORMATION
  Report Type: Spontaneous
  Country: US (occurrence: US)
  Receive Date: 20170123
  Receipt Date: 20170123
  Transmission Date: 20170428
  Serious: No
  Sender: FDA-Public Use
  Company Number: US-GLAXOSMITHKLINE-US2017006811

PATIENT
  Age: 63 Year
  Sex: Female

DRUGS (1)
  1. VOLTAREN [Suspect]
     Active Substance: DICLOFENAC SODIUM
     Indication: PERIPHERAL ARTHRITIS
     Dosage: UNK
     Dates: start: 20170116, end: 20170116

REACTIONS (4)
  - Incorrect dosage administered [Unknown]
  - Paraesthesia [Recovered/Resolved]
  - Expired product administered [Unknown]
  - Prescription drug used without a prescription [Unknown]

NARRATIVE: CASE EVENT DATE: 20170116
